FAERS Safety Report 7827131-8 (Version None)
Quarter: 2011Q4

REPORT INFORMATION
  Report Type: 
  Country: None (occurrence: None)
  Receive Date: 20111020
  Receipt Date: 20111005
  Transmission Date: 20120403
  Serious: Yes (Other)
  Sender: FDA-Public Use
  Company Number: SI-CUBIST-2011S1000247

PATIENT
  Age: 39 Year
  Sex: Male
  Weight: 51.9 kg

DRUGS (6)
  1. CEFOTAXIME [Concomitant]
     Indication: PRODUCT USED FOR UNKNOWN INDICATION
     Route: 065
  2. CUBICIN [Suspect]
     Indication: ENDOCARDITIS
     Route: 042
  3. CIPROFLOXACIN [Concomitant]
     Indication: PRODUCT USED FOR UNKNOWN INDICATION
     Route: 065
  4. METRONIDAZOLE [Concomitant]
     Indication: PRODUCT USED FOR UNKNOWN INDICATION
     Route: 065
  5. MEROPENEM [Concomitant]
     Indication: PRODUCT USED FOR UNKNOWN INDICATION
     Route: 065
  6. FLOXACILLIN SODIUM [Concomitant]
     Indication: PRODUCT USED FOR UNKNOWN INDICATION
     Route: 065

REACTIONS (6)
  - NEUTROPENIA [None]
  - BODY TEMPERATURE INCREASED [None]
  - COAGULOPATHY [None]
  - HEART RATE INCREASED [None]
  - BLOOD CREATININE INCREASED [None]
  - WHITE BLOOD CELL COUNT ABNORMAL [None]
